FAERS Safety Report 4547231-8 (Version None)
Quarter: 2005Q1

REPORT INFORMATION
  Report Type: 
  Country: None (occurrence: None)
  Receive Date: 20050107
  Receipt Date: 20021023
  Transmission Date: 20050727
  Serious: Yes (Life-Threatening, Other)
  Sender: FDA-Public Use
  Company Number: JP-MERCK-0210USA02385

PATIENT
  Age: 87 Year
  Sex: Male

DRUGS (8)
  1. COZAAR [Suspect]
     Indication: HYPERTENSION
     Route: 048
     Dates: start: 20000301, end: 20011101
  2. ASPIRIN [Suspect]
     Indication: MYOCARDIAL INFARCTION
     Route: 048
     Dates: start: 20000301, end: 20011101
  3. ISOSORBIDE DINITRATE [Suspect]
     Indication: MYOCARDIAL INFARCTION
     Route: 048
     Dates: start: 20000301, end: 20011101
  4. NITROGLYCERIN [Concomitant]
     Route: 041
     Dates: start: 20041121
  5. NITROUS OXIDE [Concomitant]
     Route: 065
     Dates: start: 20011121
  6. OXYGEN [Concomitant]
     Route: 065
     Dates: start: 20011121
  7. SEVOFLURANE [Concomitant]
     Route: 065
     Dates: start: 20011121
  8. FENTANYL [Concomitant]
     Route: 065
     Dates: start: 20011121

REACTIONS (13)
  - ANOREXIA [None]
  - BLOOD PH DECREASED [None]
  - CARDIOVASCULAR DISORDER [None]
  - CONDITION AGGRAVATED [None]
  - DEHYDRATION [None]
  - HAEMODIALYSIS [None]
  - HAEMODYNAMIC INSTABILITY [None]
  - HEART RATE DECREASED [None]
  - HYPERKALAEMIA [None]
  - HYPOTENSION [None]
  - RENAL FAILURE [None]
  - VENTRICULAR EXTRASYSTOLES [None]
  - VENTRICULAR FIBRILLATION [None]
